FAERS Safety Report 8356139-1 (Version None)
Quarter: 2012Q2

REPORT INFORMATION
  Report Type: 
  Country: None (occurrence: None)
  Receive Date: 20120514
  Receipt Date: 20120501
  Transmission Date: 20120825
  Serious: Yes (Death)
  Sender: FDA-Public Use
  Company Number: US-SANOFI-AVENTIS-2012SA030720

PATIENT
  Age: 94 Year
  Sex: Male
  Weight: 68 kg

DRUGS (4)
  1. PLAVIX [Suspect]
     Indication: STENT PLACEMENT
     Dates: start: 20100101, end: 20111007
  2. ANTIHYPERTENSIVES [Concomitant]
  3. ASPIRIN [Suspect]
  4. PLAVIX [Suspect]
     Dates: start: 20100101, end: 20111007

REACTIONS (2)
  - FALL [None]
  - HAEMORRHAGE [None]
